FAERS Safety Report 9518161 (Version 1)
Quarter: 2013Q3

REPORT INFORMATION
  Report Type: Spontaneous
  Country: US (occurrence: None)
  Receive Date: 20130910
  Receipt Date: 20130910
  Transmission Date: 20140515
  Serious: No
  Sender: FDA-Public Use
  Company Number: None

PATIENT
  Age: 37 Year
  Sex: Female
  Weight: 77.11 kg

DRUGS (1)
  1. NAPROXEN [Suspect]
     Indication: HEADACHE
     Dosage: 2PILLS ONCE DAILY TAKEN BY MOUTH
     Route: 048
     Dates: start: 20130101, end: 20130909

REACTIONS (3)
  - Swelling face [None]
  - Eye swelling [None]
  - Lip swelling [None]
